FAERS Safety Report 8941166 (Version 1)
Quarter: 2012Q4

REPORT INFORMATION
  Report Type: 
  Country: JP (occurrence: JP)
  Receive Date: 20121203
  Receipt Date: 20121203
  Transmission Date: 20130627
  Serious: Yes (Hospitalization)
  Sender: FDA-Public Use
  Company Number: JP-BRISTOL-MYERS SQUIBB COMPANY-17158858

PATIENT
  Age: 83 Year
  Sex: Female

DRUGS (1)
  1. ORENCIA FOR INJ 250 MG/VIAL [Suspect]
     Indication: RHEUMATOID ARTHRITIS
     Route: 041
     Dates: start: 20120417

REACTIONS (3)
  - Cellulitis [Recovered/Resolved]
  - Thrombophlebitis [Recovered/Resolved]
  - Henoch-Schonlein purpura [Recovered/Resolved]
